FAERS Safety Report 8192715 (Version 2)
Quarter: 2012Q4

REPORT INFORMATION
  Report Type: 
  Country: BR (occurrence: BR)
  Receive Date: 20111021
  Receipt Date: 20121210
  Transmission Date: 20130627
  Serious: Yes (Other)
  Sender: FDA-Public Use
  Company Number: BR-BAYER-2011-093987

PATIENT
  Age: 24 Year
  Sex: Female

DRUGS (1)
  1. QLAIRA [Suspect]
     Indication: CONTRACEPTION
     Dosage: 1 DF, QD
     Route: 048
     Dates: start: 201103, end: 20110923

REACTIONS (7)
  - Pregnancy on oral contraceptive [Recovered/Resolved]
  - Metrorrhagia [Recovered/Resolved]
  - Haemorrhage in pregnancy [Recovered/Resolved]
  - Urinary tract infection [None]
  - Nasopharyngitis [None]
  - Pyrexia [None]
  - Nausea [None]
